FAERS Safety Report 15258577 (Version 1)
Quarter: 2018Q3

REPORT INFORMATION
  Report Type: Other
  Country: DE (occurrence: DE)
  Receive Date: 20180809
  Receipt Date: 20180809
  Transmission Date: 20181010
  Serious: Yes (Congenital Anomaly, Other)
  Sender: FDA-Public Use
  Company Number: DE-LUPIN PHARMACEUTICALS INC.-2018-03747

PATIENT
  Sex: Male
  Weight: 4.14 kg

DRUGS (3)
  1. PAROXETINE. [Suspect]
     Active Substance: PAROXETINE
     Indication: OBSESSIVE THOUGHTS
     Dosage: 30 MG, QD
     Route: 064
     Dates: start: 20170311
  2. PAROXETINE. [Suspect]
     Active Substance: PAROXETINE
     Dosage: 15 MG, QD (REDUCED DOSE)
     Route: 064
     Dates: end: 20171225
  3. FEMIBION (NEM) [Concomitant]
     Indication: PROPHYLAXIS OF NEURAL TUBE DEFECT
     Dosage: UNK
     Route: 064

REACTIONS (2)
  - Ventricular septal defect [Recovering/Resolving]
  - Foetal exposure during pregnancy [Unknown]
